FAERS Safety Report 11230551 (Version 1)
Quarter: 2015Q3

REPORT INFORMATION
  Report Type: Spontaneous
  Country: US (occurrence: US)
  Receive Date: 20150701
  Receipt Date: 20150701
  Transmission Date: 20151125
  Serious: Yes (Other)
  Sender: FDA-Public Use
  Company Number: US-BAYER-2015-362443

PATIENT
  Age: 20 Year
  Sex: Female

DRUGS (2)
  1. MIRENA [Suspect]
     Active Substance: LEVONORGESTREL
     Indication: CONTRACEPTION
     Dosage: 20 MCG/24HR, CONT
     Route: 015
     Dates: start: 20150620, end: 20150620
  2. MIRENA [Suspect]
     Active Substance: LEVONORGESTREL
     Indication: CONTRACEPTION
     Dosage: 20 MCG/24HR, CONT
     Route: 015
     Dates: start: 201005, end: 20150620

REACTIONS (7)
  - Device deployment issue [None]
  - Device difficult to use [None]
  - Off label use of device [None]
  - Device dislocation [None]
  - Device difficult to use [None]
  - Device difficult to use [None]
  - Complication of device removal [None]

NARRATIVE: CASE EVENT DATE: 201005
